FAERS Safety Report 13614108 (Version 2)
Quarter: 2017Q2

REPORT INFORMATION
  Report Type: Report from Study
  Country: FR (occurrence: FR)
  Receive Date: 20170606
  Receipt Date: 20170609
  Transmission Date: 20170830
  Serious: Yes (Hospitalization, Other)
  Sender: FDA-Public Use
  Company Number: FR-BRISTOL-MYERS SQUIBB COMPANY-BMS-2017-049182

PATIENT
  Age: 59 Year
  Sex: Male
  Weight: 69 kg

DRUGS (6)
  1. NIVOLUMAB [Suspect]
     Active Substance: NIVOLUMAB
     Indication: MALIGNANT MELANOMA
     Dosage: 1 DF, UNK
     Route: 065
     Dates: start: 20161028
  2. IPILIMUMAB [Suspect]
     Active Substance: IPILIMUMAB
     Indication: MALIGNANT MELANOMA
     Dosage: 1 DF, UNK
     Route: 065
     Dates: start: 20161028
  3. DOLIPRANE [Concomitant]
     Active Substance: ACETAMINOPHEN
     Indication: PRODUCT USED FOR UNKNOWN INDICATION
     Dosage: 1 G, UNK
     Route: 048
     Dates: start: 20170430, end: 20170430
  4. ELUDRIL                            /00133002/ [Concomitant]
     Indication: GINGIVITIS
     Dosage: UNK
     Route: 048
     Dates: start: 20170503, end: 20170510
  5. MISSILOR [Concomitant]
     Active Substance: METRONIDAZOLE\SPIRAMYCIN
     Indication: GINGIVITIS
     Dosage: 2 DF, UNK
     Route: 048
     Dates: start: 20170504, end: 20170508
  6. HYALUGEL [Concomitant]
     Indication: GINGIVITIS
     Dosage: UNK
     Route: 048
     Dates: start: 20170503, end: 20170510

REACTIONS (1)
  - Interstitial lung disease [Not Recovered/Not Resolved]

NARRATIVE: CASE EVENT DATE: 20170528
